FAERS Safety Report 5023347-7 (Version None)
Quarter: 2006Q2

REPORT INFORMATION
  Report Type: 
  Country: None (occurrence: None)
  Receive Date: 20060525
  Receipt Date: 20060516
  Transmission Date: 20061013
  Serious: Yes (Hospitalization, Other)
  Sender: FDA-Public Use
  Company Number: 200610147BBE

PATIENT
  Age: 16 Year
  Sex: Male

DRUGS (4)
  1. GAMUNEX [Suspect]
     Indication: KAWASAKI'S DISEASE
     Dosage: SEE IMAGE
     Route: 042
     Dates: start: 20060427, end: 20060428
  2. GAMUNEX [Suspect]
     Indication: KAWASAKI'S DISEASE
     Dosage: SEE IMAGE
     Route: 042
     Dates: start: 20060502, end: 20060503
  3. GAMUNEX [Suspect]
     Indication: KAWASAKI'S DISEASE
     Dosage: SEE IMAGE
     Route: 042
     Dates: start: 20060502, end: 20060503
  4. GAMUNEX [Suspect]

REACTIONS (8)
  - CARDIAC FAILURE [None]
  - CHROMATURIA [None]
  - COOMBS DIRECT TEST POSITIVE [None]
  - HAEMOGLOBINURIA [None]
  - HAEMOLYSIS [None]
  - JAUNDICE [None]
  - PYREXIA [None]
  - SPHEROCYTIC ANAEMIA [None]
